FAERS Safety Report 4676802-3 (Version None)
Quarter: 2005Q2

REPORT INFORMATION
  Report Type: 
  Country: None (occurrence: None)
  Receive Date: 20050527
  Receipt Date: 20050222
  Transmission Date: 20051028
  Serious: Yes (Hospitalization, Disabling)
  Sender: FDA-Public Use
  Company Number: US-MERCK-0502USA03194

PATIENT
  Age: 68 Year
  Sex: Male
  Weight: 136 kg

DRUGS (7)
  1. VIOXX [Suspect]
     Indication: BACK PAIN
     Route: 048
     Dates: start: 20010403, end: 20040901
  2. VIOXX [Suspect]
     Indication: ARTHRITIS
     Route: 048
     Dates: start: 20010403, end: 20040901
  3. DIOVAN [Concomitant]
     Route: 048
     Dates: end: 20030815
  4. COUMADIN [Concomitant]
     Route: 065
  5. VITAMINS (UNSPECIFIED) [Concomitant]
     Route: 065
  6. AMBIEN [Concomitant]
     Route: 065
  7. LORTAB [Concomitant]
     Route: 065

REACTIONS (24)
  - ACUTE PRERENAL FAILURE [None]
  - ANGINA UNSTABLE [None]
  - ARTHRITIS INFECTIVE [None]
  - BLOOD PRESSURE INADEQUATELY CONTROLLED [None]
  - CARDIOMEGALY [None]
  - CATARACT [None]
  - CORONARY ARTERY DISEASE [None]
  - CYST [None]
  - DRUG INEFFECTIVE [None]
  - EMOTIONAL DISTRESS [None]
  - ERECTILE DYSFUNCTION [None]
  - FATIGUE [None]
  - GASTROOESOPHAGEAL REFLUX DISEASE [None]
  - INGUINAL HERNIA [None]
  - ISCHAEMIC CARDIOMYOPATHY [None]
  - JOINT DISLOCATION [None]
  - MYOCARDIAL INFARCTION [None]
  - NORMOCHROMIC NORMOCYTIC ANAEMIA [None]
  - ORTHOSTATIC HYPOTENSION [None]
  - OSTEOMYELITIS [None]
  - PAIN [None]
  - RECTAL HAEMORRHAGE [None]
  - RENAL FAILURE [None]
  - URINARY TRACT INFECTION [None]
